FAERS Safety Report 8219036-8 (Version None)
Quarter: 2012Q1

REPORT INFORMATION
  Report Type: 
  Country: None (occurrence: None)
  Receive Date: 20120319
  Receipt Date: 20120314
  Transmission Date: 20120608
  Serious: Yes (Hospitalization)
  Sender: FDA-Public Use
  Company Number: BR-PFIZER INC-2012068341

PATIENT
  Age: 66 Year
  Sex: Female

DRUGS (3)
  1. TYLENOL [Concomitant]
     Indication: PAIN
     Dosage: ONE TABLET THREE TIMES PER DAY
     Dates: start: 20120201
  2. LYRICA [Suspect]
     Indication: PAIN IN EXTREMITY
     Dosage: 75 MG, 2X/DAY
     Route: 048
     Dates: start: 20111201
  3. DOLAMIN [Concomitant]
     Indication: PAIN
     Dosage: ONE TABLET THREE TIMES PER DAY
     Dates: start: 20120201

REACTIONS (1)
  - EXOSTOSIS [None]
